FAERS Safety Report 8857575 (Version 2)
Quarter: 2012Q4

REPORT INFORMATION
  Report Type: 
  Country: DE (occurrence: CH)
  Receive Date: 20121024
  Receipt Date: 20121112
  Transmission Date: 20130627
  Serious: Yes (Other)
  Sender: FDA-Public Use
  Company Number: CH-FRI-1000039707

PATIENT
  Sex: Male
  Weight: 65 kg

DRUGS (3)
  1. MEMANTINE [Suspect]
     Indication: DEMENTIA ALZHEIMER^S TYPE
     Dosage: 20 mg
     Route: 048
     Dates: start: 20111118, end: 20120123
  2. SORTIS [Concomitant]
     Indication: HYPERCHOLESTEROLAEMIA
     Dosage: 20 mg
     Dates: start: 2004, end: 2012
  3. INHIBACE PLUS [Concomitant]
     Indication: HYPERTENSION
     Dosage: 5 mg
     Dates: start: 2004, end: 2012

REACTIONS (1)
  - Epilepsy [Not Recovered/Not Resolved]
